FAERS Safety Report 12346433 (Version 3)
Quarter: 2016Q3

REPORT INFORMATION
  Report Type: Report from Study
  Country: CN (occurrence: CN)
  Receive Date: 20160509
  Receipt Date: 20160823
  Transmission Date: 20161109
  Serious: Yes (Other)
  Sender: FDA-Public Use
  Company Number: CN-ROCHE-1754491

PATIENT
  Sex: Male
  Weight: 61 kg

DRUGS (1)
  1. AVASTIN [Suspect]
     Active Substance: BEVACIZUMAB
     Indication: RECTAL CANCER
     Route: 041
     Dates: start: 20140812, end: 20160525

REACTIONS (3)
  - Neoplasm progression [Unknown]
  - Drug ineffective [Unknown]
  - Drug resistance [Unknown]
